FAERS Safety Report 7347691-3 (Version None)
Quarter: 2011Q1

REPORT INFORMATION
  Report Type: 
  Country: None (occurrence: None)
  Receive Date: 20110218
  Receipt Date: 20100929
  Transmission Date: 20110831
  Serious: Yes (Other)
  Sender: FDA-Public Use
  Company Number: 2010026556

PATIENT
  Sex: Female

DRUGS (8)
  1. HIZENTRA [Suspect]
  2. ASTEPRO [Suspect]
  3. SUDAFED 12 HOUR [Concomitant]
  4. HIZENTRA [Suspect]
     Indication: IMMUNODEFICIENCY COMMON VARIABLE
     Dosage: SEE IMAGE SUBCUTANEOUS
     Route: 058
     Dates: start: 20100921
  5. HIZENTRA [Suspect]
     Indication: HYPOGAMMAGLOBULINAEMIA
     Dosage: SEE IMAGE SUBCUTANEOUS
     Route: 058
     Dates: start: 20100921
  6. PATANOL [Suspect]
  7. SUDAFED 12 HOUR [Suspect]
  8. SYMBICORT [Suspect]

REACTIONS (6)
  - BLOOD PRESSURE INCREASED [None]
  - MUSCULOSKELETAL CHEST PAIN [None]
  - HEADACHE [None]
  - NAUSEA [None]
  - INFUSION SITE RASH [None]
  - CONTUSION [None]
